FAERS Safety Report 24373136 (Version 1)
Quarter: 2024Q3

REPORT INFORMATION
  Report Type: Spontaneous
  Country: US (occurrence: US)
  Receive Date: 20240927
  Receipt Date: 20240927
  Transmission Date: 20241016
  Serious: No
  Sender: Thea Pharma
  Company Number: US-THEA-2023001304

PATIENT
  Sex: Female

DRUGS (3)
  1. AZASITE [Suspect]
     Active Substance: AZITHROMYCIN MONOHYDRATE
     Indication: Product used for unknown indication
     Dosage: BOTH EYES
     Route: 047
     Dates: start: 20230712
  2. XIIDRA [Concomitant]
     Active Substance: LIFITEGRAST
     Indication: Product used for unknown indication
  3. FLUOROMETHOLONE [Concomitant]
     Active Substance: FLUOROMETHOLONE
     Indication: Product used for unknown indication

REACTIONS (3)
  - Off label use [Unknown]
  - Product packaging quantity issue [Unknown]
  - Product dose omission issue [Unknown]
